FAERS Safety Report 22127512 (Version 1)
Quarter: 2023Q1

REPORT INFORMATION
  Report Type: Report from Study
  Country: US (occurrence: US)
  Receive Date: 20230323
  Receipt Date: 20230323
  Transmission Date: 20230418
  Serious: Yes (Other)
  Sender: FDA-Public Use
  Company Number: US-ABBVIE-4697449

PATIENT
  Sex: Female

DRUGS (1)
  1. IMBRUVICA [Suspect]
     Active Substance: IBRUTINIB
     Indication: Chronic lymphocytic leukaemia
     Route: 048
     Dates: start: 20220823

REACTIONS (5)
  - Loss of consciousness [Recovered/Resolved]
  - Electrocardiogram ambulatory [Unknown]
  - Adverse food reaction [Unknown]
  - Head injury [Unknown]
  - Fall [Recovered/Resolved]
